FAERS Safety Report 12755428 (Version 1)
Quarter: 2016Q3

REPORT INFORMATION
  Report Type: Spontaneous
  Country: DE (occurrence: DE)
  Receive Date: 20160916
  Receipt Date: 20160916
  Transmission Date: 20161109
  Serious: Yes (Other)
  Sender: FDA-Public Use
  Company Number: DE-ASTRAZENECA-2016SE97014

PATIENT
  Sex: Male

DRUGS (2)
  1. BRILLIQUE [Suspect]
     Active Substance: TICAGRELOR
     Route: 048
     Dates: start: 2011, end: 2014
  2. BRILLIQUE [Suspect]
     Active Substance: TICAGRELOR
     Route: 048
     Dates: start: 2014

REACTIONS (1)
  - Device occlusion [Unknown]
